FAERS Safety Report 4497795-8 (Version None)
Quarter: 2004Q4

REPORT INFORMATION
  Report Type: 
  Country: None (occurrence: None)
  Receive Date: 20041104
  Receipt Date: 20041027
  Transmission Date: 20050328
  Serious: Yes (Disabling)
  Sender: FDA-Public Use
  Company Number: 2004EU001414

PATIENT
  Age: 57 Year
  Sex: Male
  Weight: 86 kg

DRUGS (6)
  1. PROGRAF [Suspect]
     Indication: HEART TRANSPLANT
     Dosage: 3.00 MG, BID, ORAL
     Route: 048
  2. CELLCEPT [Suspect]
     Indication: HEART TRANSPLANT
     Dosage: 1000.00 MG, BID, ORAL
     Route: 048
  3. ZYLORIC            (ALLOPURINOL) [Suspect]
     Indication: HYPERURICAEMIA
     Dosage: 100.00 MG, UID/QD, ORAL
     Route: 048
  4. ATORVASTATIN CALCIUM [Suspect]
     Indication: MIXED HYPERLIPIDAEMIA
     Dosage: 20.00 MG, UID/QD, ORAL
     Route: 048
  5. KENZEN (CANDESARTAN CILEXETIL) [Suspect]
     Indication: HYPERTENSION
     Dosage: 16.00 MG, UID/QD, ORAL
     Route: 048
     Dates: start: 20001222
  6. ACTONEL [Suspect]
     Indication: OSTEOPOROSIS
     Dosage: 5.00 MG, UID/QD, ORAL
     Route: 048

REACTIONS (1)
  - TENDON RUPTURE [None]
